FAERS Safety Report 8276422-8 (Version None)
Quarter: 2012Q2

REPORT INFORMATION
  Report Type: 
  Country: None (occurrence: None)
  Receive Date: 20120412
  Receipt Date: 20120330
  Transmission Date: 20120825
  Serious: Yes (Other)
  Sender: FDA-Public Use
  Company Number: DE-BRISTOL-MYERS SQUIBB COMPANY-16490799

PATIENT
  Sex: Male

DRUGS (1)
  1. PRAVASTATIN SODIUM [Suspect]
     Dosage: PRAVASTATIN N

REACTIONS (3)
  - BLOOD CHOLESTEROL ABNORMAL [None]
  - MYALGIA [None]
  - MYOCARDIAL INFARCTION [None]
